FAERS Safety Report 6430201-2 (Version None)
Quarter: 2009Q4

REPORT INFORMATION
  Report Type: 
  Country: None (occurrence: None)
  Receive Date: 20091104
  Receipt Date: 20091027
  Transmission Date: 20100525
  Serious: Yes (Other)
  Sender: FDA-Public Use
  Company Number: APP200900720

PATIENT
  Sex: Male

DRUGS (2)
  1. DIPRIVAN [Suspect]
     Indication: ENDOSCOPY
     Dosage: INTRAVENOUS
     Route: 042
     Dates: start: 20091020, end: 20091020
  2. IV ANTIBIOTICS [Concomitant]

REACTIONS (2)
  - ANXIETY [None]
  - MEDICAL DEVICE COMPLICATION [None]
